FAERS Safety Report 15537358 (Version 1)
Quarter: 2018Q4

REPORT INFORMATION
  Report Type: Spontaneous
  Country: US (occurrence: US)
  Receive Date: 20181016
  Receipt Date: 20181016
  Transmission Date: 20190205
  Serious: No
  Sender: FDA-Public Use
  Company Number: None

PATIENT
  Age: 36 Year
  Sex: Female
  Weight: 58.2 kg

DRUGS (1)
  1. TUBERSOL [Suspect]
     Active Substance: TUBERCULIN PURIFIED PROTEIN DERIVATIVE
     Indication: PULMONARY TUBERCULOSIS
     Dosage: ?          OTHER STRENGTH:5 US;OTHER DOSE:0.1 ML;?
     Route: 023

REACTIONS (1)
  - Injection site pain [None]

NARRATIVE: CASE EVENT DATE: 20181002
